FAERS Safety Report 9408478 (Version 3)
Quarter: 2014Q4

REPORT INFORMATION
  Report Type: Report from Study
  Country: US (occurrence: US)
  Receive Date: 20130718
  Receipt Date: 20141017
  Transmission Date: 20150529
  Serious: Yes (Death, Other)
  Sender: FDA-Public Use
  Company Number: US-GILEAD-2013-0079029

PATIENT
  Age: 48 Year
  Sex: Male

DRUGS (2)
  1. AZTREONAM LYSINE [Suspect]
     Active Substance: AZTREONAM LYSINE
     Indication: INFECTIVE PULMONARY EXACERBATION OF CYSTIC FIBROSIS
     Dosage: 75 MG, UNK
     Route: 055
     Dates: start: 20100519, end: 20110112
  2. AZTREONAM LYSINE [Suspect]
     Active Substance: AZTREONAM LYSINE
     Indication: CYSTIC FIBROSIS

REACTIONS (1)
  - Death [Fatal]

NARRATIVE: CASE EVENT DATE: 20130612
